FAERS Safety Report 14655179 (Version 4)
Quarter: 2019Q4

REPORT INFORMATION
  Report Type: Spontaneous
  Country: US (occurrence: US)
  Receive Date: 20180319
  Receipt Date: 20191203
  Transmission Date: 20200122
  Serious: Yes (Hospitalization)
  Sender: FDA-Public Use
  Company Number: US-CELLTRION INC.-2017US013851

PATIENT

DRUGS (4)
  1. INFLECTRA [Suspect]
     Active Substance: INFLIXIMAB-DYYB
     Indication: ANKYLOSING SPONDYLITIS
     Dosage: UNK
     Route: 065
     Dates: start: 20180426, end: 20180426
  2. INFLECTRA [Suspect]
     Active Substance: INFLIXIMAB-DYYB
     Dosage: 500 MG EVERY 8 WEEKS, IV
     Route: 042
     Dates: start: 201104, end: 20190819
  3. HYDROCODONE [Concomitant]
     Active Substance: HYDROCODONE
     Dosage: NOT PROVIDED
  4. PRILOSEC [Concomitant]
     Active Substance: OMEPRAZOLE MAGNESIUM
     Dosage: 20 MG TWO TABLETS ONCE A DAY

REACTIONS (4)
  - Product prescribing issue [Unknown]
  - Urinary tract infection [Unknown]
  - Overdose [Unknown]
  - Oesophageal motility disorder [Unknown]
